FAERS Safety Report 9631369 (Version 1)
Quarter: 2013Q4

REPORT INFORMATION
  Report Type: Spontaneous
  Country: ES (occurrence: ES)
  Receive Date: 20131018
  Receipt Date: 20131018
  Transmission Date: 20140711
  Serious: No
  Sender: FDA-Public Use
  Company Number: ES-009507513-1310ESP007615

PATIENT
  Age: 25 Year
  Sex: Female

DRUGS (3)
  1. SYCREST [Suspect]
     Indication: BIPOLAR I DISORDER
     Dosage: 20 MG 1 PER DAY
     Route: 060
     Dates: start: 20130914, end: 201309
  2. SYCREST [Suspect]
     Dosage: 15 MG DAILY
     Route: 060
     Dates: start: 201309
  3. DEPAKINE [Concomitant]
     Indication: BIPOLAR I DISORDER

REACTIONS (1)
  - Rash generalised [Recovered/Resolved]
